FAERS Safety Report 24108280 (Version 3)
Quarter: 2024Q3

REPORT INFORMATION
  Report Type: Spontaneous
  Country: US (occurrence: US)
  Receive Date: 20240718
  Receipt Date: 20240812
  Transmission Date: 20241016
  Serious: No
  Sender: Haleon PLC
  Company Number: US-HALEON-2186473

PATIENT
  Age: 34 Year
  Sex: Female

DRUGS (2)
  1. NICOTINE POLACRILEX [Suspect]
     Active Substance: NICOTINE
     Indication: Product used for unknown indication
     Dates: start: 20240709, end: 20240710
  2. NICOTINE POLACRILEX [Suspect]
     Active Substance: NICOTINE

REACTIONS (5)
  - Oral discomfort [Recovered/Resolved]
  - Poor quality product administered [Unknown]
  - Suspected counterfeit product [Unknown]
  - Product complaint [Unknown]
  - Burning sensation [Unknown]

NARRATIVE: CASE EVENT DATE: 20240709
